FAERS Safety Report 6075466-4 (Version None)
Quarter: 2009Q1

REPORT INFORMATION
  Report Type: 
  Country: None (occurrence: None)
  Receive Date: 20090212
  Receipt Date: 20090204
  Transmission Date: 20090719
  Serious: Yes (Other)
  Sender: FDA-Public Use
  Company Number: B0550432A

PATIENT
  Age: 60 Year
  Sex: Male
  Weight: 71 kg

DRUGS (2)
  1. ABACAVIR SULFATE/LAMIVUDINE [Suspect]
     Indication: HIV INFECTION
     Route: 065
     Dates: start: 20080815
  2. VIRAMUNE [Concomitant]
     Indication: HIV INFECTION
     Dosage: 2TAB PER DAY
     Route: 065
     Dates: start: 20021120

REACTIONS (3)
  - ANAEMIA [None]
  - MYALGIA [None]
  - PAIN IN EXTREMITY [None]
